FAERS Safety Report 24223393 (Version 2)
Quarter: 2025Q1

REPORT INFORMATION
  Report Type: Spontaneous
  Country: US (occurrence: US)
  Receive Date: 20240819
  Receipt Date: 20250131
  Transmission Date: 20250408
  Serious: No
  Sender: LEO PHARM
  Company Number: US-LEO Pharma-372767

PATIENT
  Age: 27 Year
  Sex: Male

DRUGS (1)
  1. ADBRY [Suspect]
     Active Substance: TRALOKINUMAB-LDRM
     Indication: Eczema

REACTIONS (2)
  - Eczema [Unknown]
  - Burning sensation [Unknown]
